FAERS Safety Report 10307463 (Version 1)
Quarter: 2014Q3

REPORT INFORMATION
  Report Type: Spontaneous
  Country: PH (occurrence: PH)
  Receive Date: 20140716
  Receipt Date: 20140716
  Transmission Date: 20150326
  Serious: Yes (Other)
  Sender: FDA-Public Use
  Company Number: PHHY2014PH084800

PATIENT
  Age: 55 Year
  Sex: Female

DRUGS (3)
  1. TASIGNA [Suspect]
     Active Substance: NILOTINIB
     Dosage: 2 DF, UNK
  2. TASIGNA [Suspect]
     Active Substance: NILOTINIB
     Indication: CHRONIC MYELOID LEUKAEMIA
     Dosage: 4 DF, UNK
  3. TASIGNA [Suspect]
     Active Substance: NILOTINIB
     Dosage: 1 DF, UNK

REACTIONS (5)
  - Haemoglobin decreased [Unknown]
  - Neutrophil count decreased [Unknown]
  - Vitreous floaters [Unknown]
  - Oedema peripheral [Unknown]
  - Visual field defect [Unknown]
